FAERS Safety Report 14755861 (Version 1)
Quarter: 2018Q2

REPORT INFORMATION
  Report Type: Spontaneous
  Country: US (occurrence: US)
  Receive Date: 20180413
  Receipt Date: 20180413
  Transmission Date: 20180711
  Serious: No
  Sender: FDA-Public Use
  Company Number: US-BAYER-2018-071903

PATIENT
  Age: 5 Year
  Sex: Male
  Weight: 30 kg

DRUGS (3)
  1. CLARITIN [Suspect]
     Active Substance: LORATADINE
     Indication: HYPERSENSITIVITY
     Dosage: 1 DF, UNK
     Route: 048
  2. CLARITIN [Suspect]
     Active Substance: LORATADINE
     Indication: NASOPHARYNGITIS
     Dosage: 6 DF, ONCE
     Route: 048
     Dates: start: 20180412, end: 20180412
  3. VICKS INHALER [Concomitant]
     Active Substance: CAMPHOR\MENTHOL\METHYL SALICYLATE\PINE NEEDLE OIL (PINUS MUGO)

REACTIONS (1)
  - Accidental exposure to product by child [Recovered/Resolved]

NARRATIVE: CASE EVENT DATE: 20180412
